FAERS Safety Report 15746037 (Version 1)
Quarter: 2018Q4

REPORT INFORMATION
  Report Type: Report from Study
  Country: US (occurrence: US)
  Receive Date: 20181220
  Receipt Date: 20181220
  Transmission Date: 20190205
  Serious: Yes (Death)
  Sender: FDA-Public Use
  Company Number: US-ACTELION-A-US2018-183589

PATIENT
  Age: 53 Year
  Sex: Male

DRUGS (15)
  1. DICLOFENAC [Concomitant]
     Active Substance: DICLOFENAC
  2. BETAMETH [Concomitant]
  3. XIFAXAN [Concomitant]
     Active Substance: RIFAXIMIN
  4. FLUTICASONE. [Concomitant]
     Active Substance: FLUTICASONE
  5. TRAMADOL. [Concomitant]
     Active Substance: TRAMADOL
  6. METHYLPRED [Concomitant]
     Active Substance: METHYLPREDNISOLONE
  7. GABAPENTIN. [Concomitant]
     Active Substance: GABAPENTIN
  8. LACTULOSE. [Concomitant]
     Active Substance: LACTULOSE
  9. VENTOLIN [Concomitant]
     Active Substance: ALBUTEROL SULFATE
  10. CYCLOBENZAPRIN [Concomitant]
     Active Substance: CYCLOBENZAPRINE
  11. OPSUMIT [Suspect]
     Active Substance: MACITENTAN
     Indication: PULMONARY ARTERIAL HYPERTENSION
     Dosage: 10 MG, QD
     Route: 048
     Dates: start: 20181113
  12. OMEPRAZOLE. [Concomitant]
     Active Substance: OMEPRAZOLE
  13. POTASSIUM [Concomitant]
     Active Substance: POTASSIUM
  14. FUROSEMIDE. [Concomitant]
     Active Substance: FUROSEMIDE
  15. PROPRANOLOL [Concomitant]
     Active Substance: PROPRANOLOL HYDROCHLORIDE

REACTIONS (1)
  - Death [Fatal]

NARRATIVE: CASE EVENT DATE: 20181205
